FAERS Safety Report 6553275-7 (Version None)
Quarter: 2010Q1

REPORT INFORMATION
  Report Type: 
  Country: None (occurrence: None)
  Receive Date: 20100127
  Receipt Date: 20090601
  Transmission Date: 20100710
  Serious: No
  Sender: FDA-Public Use
  Company Number: A0785380A

PATIENT

DRUGS (2)
  1. SUMATRIPTAN SUCCINATE [Suspect]
     Indication: MIGRAINE PROPHYLAXIS
     Dosage: 6MG UNKNOWN
     Route: 065
  2. GSK AUTOINJECTOR [Suspect]
     Indication: MIGRAINE PROPHYLAXIS
     Dosage: 6MG UNKNOWN
     Route: 065

REACTIONS (3)
  - DRUG INEFFECTIVE [None]
  - MIGRAINE [None]
  - PRODUCT QUALITY ISSUE [None]
